FAERS Safety Report 8839594 (Version 1)
Quarter: 2012Q4

REPORT INFORMATION
  Report Type: Spontaneous
  Country: US (occurrence: None)
  Receive Date: 20121011
  Receipt Date: 20121011
  Transmission Date: 20130627
  Serious: Yes (Life-Threatening, Hospitalization)
  Sender: FDA-Public Use
  Company Number: None

PATIENT
  Age: 42 Year
  Sex: Female
  Weight: 51.71 kg

DRUGS (3)
  1. CYMBALTA [Suspect]
     Indication: PAIN
     Route: 048
     Dates: start: 20120915, end: 20120920
  2. CYMBALTA [Suspect]
     Indication: CERVICALGIA
     Route: 048
     Dates: start: 20120915, end: 20120920
  3. CYMBALTA [Suspect]
     Indication: ANXIOUS DEPRESSION
     Route: 048
     Dates: start: 20120915, end: 20120920

REACTIONS (1)
  - Inappropriate antidiuretic hormone secretion [None]
